FAERS Safety Report 24981804 (Version 1)
Quarter: 2025Q1

REPORT INFORMATION
  Report Type: Spontaneous
  Country: US (occurrence: None)
  Receive Date: 20250218
  Receipt Date: 20250218
  Transmission Date: 20250408
  Serious: Yes (Other)
  Sender: FDA-CTU
  Company Number: None

PATIENT
  Age: 64 Year
  Sex: Female
  Weight: 78.75 kg

DRUGS (8)
  1. TYRVAYA [Suspect]
     Active Substance: VARENICLINE TARTRATE
     Indication: Dry eye
     Dosage: OTHER QUANTITY : 60 SPRAY(S);?FREQUENCY : EVERY 12 HOURS;?OTHER ROUTE : SINGLE SPRAY IN EACH NOSTRIL;?
     Route: 050
     Dates: start: 20250214, end: 20250214
  2. Hydrocholorthiazide [Concomitant]
  3. ROSUVASTATIN [Concomitant]
     Active Substance: ROSUVASTATIN
  4. METOPROLOL [Concomitant]
     Active Substance: METOPROLOL
  5. MONTELUKAST [Concomitant]
     Active Substance: MONTELUKAST
  6. PRILOSEC [Concomitant]
     Active Substance: OMEPRAZOLE MAGNESIUM
  7. TYLENOL [Concomitant]
     Active Substance: ACETAMINOPHEN
  8. CLARITIN [Concomitant]
     Active Substance: LORATADINE

REACTIONS (3)
  - Swelling of eyelid [None]
  - Erythema of eyelid [None]
  - Eyelid pain [None]

NARRATIVE: CASE EVENT DATE: 20250214
